FAERS Safety Report 7544143-2 (Version None)
Quarter: 2011Q2

REPORT INFORMATION
  Report Type: 
  Country: None (occurrence: None)
  Receive Date: 20110613
  Receipt Date: 20060309
  Transmission Date: 20111010
  Serious: Yes (Death, Hospitalization, Other)
  Sender: FDA-Public Use
  Company Number: PHHO2005CA00707

PATIENT
  Sex: Female

DRUGS (13)
  1. FLUOROURACIL [Concomitant]
     Dates: start: 20041001
  2. WARFARIN SODIUM [Concomitant]
  3. SANDOSTATIN LAR [Suspect]
     Dosage: 90 MG, EVERY 2 WEEKS
     Dates: end: 20051207
  4. SANDOSTATIN [Suspect]
     Indication: CARCINOID TUMOUR
  5. CORGARD [Concomitant]
  6. VITAMIN B6 [Concomitant]
  7. MAGNESIUM SULFATE [Concomitant]
  8. LIPITOR [Concomitant]
  9. PROCHLORPERAZINE TAB [Concomitant]
  10. SANDOSTATIN LAR [Suspect]
     Indication: CARCINOID TUMOUR
     Dosage: 40 MG
     Dates: start: 20041028, end: 20050105
  11. RADIOTHERAPY [Concomitant]
  12. HYDROCHLOROTHIAZIDE [Concomitant]
  13. GRAVOL TAB [Concomitant]

REACTIONS (9)
  - PLATELET COUNT DECREASED [None]
  - BLOOD POTASSIUM DECREASED [None]
  - PYREXIA [None]
  - BLOOD MAGNESIUM DECREASED [None]
  - NAUSEA [None]
  - NEOPLASM MALIGNANT [None]
  - BONE MARROW DISORDER [None]
  - WHITE BLOOD CELL COUNT DECREASED [None]
  - HAEMOGLOBIN DECREASED [None]
